FAERS Safety Report 20085216 (Version 1)
Quarter: 2021Q4

REPORT INFORMATION
  Report Type: Spontaneous
  Country: US (occurrence: US)
  Receive Date: 20211118
  Receipt Date: 20211118
  Transmission Date: 20220303
  Serious: No
  Sender: FDA-Public Use
  Company Number: US-SA-SAC20211112001088

PATIENT
  Sex: Male

DRUGS (10)
  1. DUPIXENT [Suspect]
     Active Substance: DUPILUMAB
     Indication: Asthma
     Dosage: 300 MG, QOW
     Route: 058
  2. DILTIAZEM HYDROCHLORIDE [Concomitant]
     Active Substance: DILTIAZEM HYDROCHLORIDE
  3. ENALAPRIL MALEATE [Concomitant]
     Active Substance: ENALAPRIL MALEATE
  4. ESOMEPRAZOLE [Concomitant]
     Active Substance: ESOMEPRAZOLE
  5. HUMALOG [Concomitant]
     Active Substance: INSULIN LISPRO
  6. HYDRALAZINE [Concomitant]
     Active Substance: HYDRALAZINE HYDROCHLORIDE
  7. LANTUS [Concomitant]
     Active Substance: INSULIN GLARGINE
  8. MORPHINE SULFATE [Concomitant]
     Active Substance: MORPHINE SULFATE
  9. PAROXETINE HYDROCHLORIDE [Concomitant]
     Active Substance: PAROXETINE HYDROCHLORIDE
  10. ROSUVASTATIN [Concomitant]
     Active Substance: ROSUVASTATIN

REACTIONS (1)
  - Therapeutic product effect incomplete [Unknown]
